FAERS Safety Report 20017950 (Version 2)
Quarter: 2021Q4

REPORT INFORMATION
  Report Type: Spontaneous
  Country: US (occurrence: US)
  Receive Date: 20211101
  Receipt Date: 20211203
  Transmission Date: 20220304
  Serious: No
  Sender: FDA-Public Use
  Company Number: US-SA-SAC20211026000854

PATIENT
  Age: 68 Year
  Sex: Male

DRUGS (16)
  1. DUPIXENT [Suspect]
     Active Substance: DUPILUMAB
     Indication: Dermatitis
     Dosage: 600 MG, 1X
     Route: 058
     Dates: start: 20211011, end: 20211011
  2. DUPIXENT [Suspect]
     Active Substance: DUPILUMAB
     Dosage: 300 MG, QOW
     Route: 058
     Dates: start: 2021, end: 20211122
  3. ALLOPURINOL [Concomitant]
     Active Substance: ALLOPURINOL
     Dosage: 20 MG
  4. ALLOPURINOL [Concomitant]
     Active Substance: ALLOPURINOL
     Dosage: UNK
  5. ATORVASTATIN [Concomitant]
     Active Substance: ATORVASTATIN
     Dosage: 300 MG
  6. ATORVASTATIN [Concomitant]
     Active Substance: ATORVASTATIN
  7. EUCRISA [Concomitant]
     Active Substance: CRISABOROLE
     Dosage: 15 MG
  8. EUCRISA [Concomitant]
     Active Substance: CRISABOROLE
  9. LISINOPRIL [Concomitant]
     Active Substance: LISINOPRIL
     Dosage: 15 MG
  10. LISINOPRIL [Concomitant]
     Active Substance: LISINOPRIL
  11. MELOXICAM [Concomitant]
     Active Substance: MELOXICAM
     Dosage: 15 MG
  12. MELOXICAM [Concomitant]
     Active Substance: MELOXICAM
  13. SYNTHROID [Concomitant]
     Active Substance: LEVOTHYROXINE SODIUM
     Dosage: 10 MG
  14. SYNTHROID [Concomitant]
     Active Substance: LEVOTHYROXINE SODIUM
  15. AMITRIPTYLINE [Concomitant]
     Active Substance: AMITRIPTYLINE
     Dosage: UNK
  16. TRIAMCINOLONE [Concomitant]
     Active Substance: TRIAMCINOLONE
     Dosage: UNK

REACTIONS (5)
  - Injection site pain [Unknown]
  - Skin exfoliation [Unknown]
  - Dry skin [Unknown]
  - Skin fissures [Not Recovered/Not Resolved]
  - Product use in unapproved indication [Unknown]

NARRATIVE: CASE EVENT DATE: 20210101
